FAERS Safety Report 10428128 (Version 2)
Quarter: 2014Q4

REPORT INFORMATION
  Report Type: Spontaneous
  Country: GB (occurrence: GB)
  Receive Date: 20140903
  Receipt Date: 20141013
  Transmission Date: 20150528
  Serious: Yes (Other)
  Sender: FDA-Public Use
  Company Number: GB-TEVA-504452ISR

PATIENT
  Age: 34 Year
  Sex: Female

DRUGS (1)
  1. RISPERIDONE. [Suspect]
     Active Substance: RISPERIDONE
     Indication: PRODUCT USED FOR UNKNOWN INDICATION
     Route: 065

REACTIONS (4)
  - Lactation disorder [Recovered/Resolved]
  - Vulvovaginal dryness [Recovered/Resolved]
  - Suicidal ideation [Unknown]
  - Sexual dysfunction [Not Recovered/Not Resolved]
